FAERS Safety Report 6930272-0 (Version None)
Quarter: 2010Q3

REPORT INFORMATION
  Report Type: 
  Country: None (occurrence: None)
  Receive Date: 20100818
  Receipt Date: 20100808
  Transmission Date: 20110219
  Serious: Yes (Other)
  Sender: FDA-Public Use
  Company Number: US-JNJFOC-20100803082

PATIENT
  Sex: Female

DRUGS (1)
  1. LEVAQUIN [Suspect]
     Indication: PRODUCT USED FOR UNKNOWN INDICATION
     Route: 065

REACTIONS (5)
  - DOUBLE STRANDED DNA ANTIBODY [None]
  - IMPAIRED HEALING [None]
  - LIGAMENT RUPTURE [None]
  - MUSCLE RUPTURE [None]
  - TENDON RUPTURE [None]
